FAERS Safety Report 5593863-8 (Version None)
Quarter: 2008Q1

REPORT INFORMATION
  Report Type: 
  Country: None (occurrence: None)
  Receive Date: 20080116
  Receipt Date: 20071219
  Transmission Date: 20080703
  Serious: No
  Sender: FDA-Public Use
  Company Number: US-BOEHRINGER INGELHEIM PHARMACEUTICALS, INC.-2007-BP-04516PF

PATIENT
  Sex: Female

DRUGS (11)
  1. SPIRIVA [Suspect]
     Indication: EMPHYSEMA
  2. CHANTIX [Suspect]
     Indication: SMOKING CESSATION THERAPY
     Dates: start: 20061001
  3. CHANTIX [Suspect]
     Dates: start: 20070901
  4. ADVAIR DISKUS 100/50 [Suspect]
  5. ALBUTEROL [Suspect]
     Route: 055
  6. SEROQUEL [Concomitant]
     Indication: DEPRESSION
  7. NORVASC [Concomitant]
     Indication: HYPERTENSION
  8. LIPITOR [Concomitant]
     Indication: BLOOD CHOLESTEROL INCREASED
  9. TRAMADOL HCL [Concomitant]
     Indication: ARTHRITIS
  10. CITALOPRAM [Concomitant]
     Indication: DEPRESSION
  11. FLUCONAZOLE [Concomitant]
     Indication: FUNGAL INFECTION

REACTIONS (6)
  - FUNGAL INFECTION [None]
  - LARYNGITIS [None]
  - NAUSEA [None]
  - STOMACH DISCOMFORT [None]
  - VOMITING [None]
  - WRONG TECHNIQUE IN DRUG USAGE PROCESS [None]
